FAERS Safety Report 10025790 (Version 3)
Quarter: 2019Q4

REPORT INFORMATION
  Report Type: Spontaneous
  Country: CH (occurrence: CH)
  Receive Date: 20140320
  Receipt Date: 20191021
  Transmission Date: 20200122
  Serious: Yes (Congenital Anomaly)
  Sender: FDA-Public Use
  Company Number: CH-TEVA-467416ISR

PATIENT
  Sex: Male
  Weight: 2.15 kg

DRUGS (2)
  1. SUPRACYCLIN [Suspect]
     Active Substance: DOXYCYCLINE
     Indication: CHLAMYDIAL INFECTION
     Dosage: 200 MILLIGRAM DAILY;
     Route: 064
     Dates: start: 20130311, end: 20130318
  2. CO-AMOXI-MEPHA [Suspect]
     Active Substance: AMOXICILLIN\CLAVULANATE POTASSIUM
     Indication: CHLAMYDIAL INFECTION
     Dosage: 3 DOSAGE FORMS DAILY; 1 DF = 500MG AMOXICILLIN + 125MG CLAVULANIC ACID
     Route: 064
     Dates: start: 20130311, end: 20130318

REACTIONS (2)
  - Maternal exposure during pregnancy [Recovered/Resolved]
  - Fallot^s tetralogy [Unknown]

NARRATIVE: CASE EVENT DATE: 2013
